FAERS Safety Report 4617512-8 (Version None)
Quarter: 2005Q1

REPORT INFORMATION
  Report Type: 
  Country: None (occurrence: None)
  Receive Date: 20050322
  Receipt Date: 20050120
  Transmission Date: 20050727
  Serious: Yes (Death)
  Sender: FDA-Public Use
  Company Number: 2005S1000238

PATIENT
  Age: 38 Year
  Sex: Female
  Weight: 86.1834 kg

DRUGS (7)
  1. CLOZAPINE [Suspect]
     Indication: SCHIZOPHRENIA, PARANOID TYPE
     Dosage: 300 MG; HS; PO
     Route: 048
     Dates: end: 20041228
  2. LEXAPRO [Concomitant]
  3. LOPRESSOR [Concomitant]
  4. SEROQUEL [Concomitant]
  5. TOPAMAX [Concomitant]
  6. ZOCOR [Concomitant]
  7. MULTIVITAMINS AND IRON [Concomitant]

REACTIONS (1)
  - COMPLETED SUICIDE [None]
